FAERS Safety Report 13978150 (Version 6)
Quarter: 2019Q2

REPORT INFORMATION
  Report Type: Spontaneous
  Country: US (occurrence: US)
  Receive Date: 20170915
  Receipt Date: 20190503
  Transmission Date: 20190711
  Serious: No
  Sender: FDA-Public Use
  Company Number: US-ASTRAZENECA-2017SE93318

PATIENT
  Age: 26880 Day
  Sex: Male
  Weight: 93 kg

DRUGS (6)
  1. BYDUREON BCISE [Suspect]
     Active Substance: EXENATIDE
     Indication: TYPE 2 DIABETES MELLITUS
     Route: 058
  2. COUMADIN [Concomitant]
     Active Substance: WARFARIN SODIUM
  3. BYDUREON [Suspect]
     Active Substance: EXENATIDE
     Indication: TYPE 2 DIABETES MELLITUS
     Route: 058
  4. BYDUREON [Suspect]
     Active Substance: EXENATIDE
     Route: 065
  5. TOUJEO [Suspect]
     Active Substance: INSULIN GLARGINE
     Dosage: EVERY NIGHT
     Route: 065
  6. BYDUREON [Suspect]
     Active Substance: EXENATIDE
     Indication: TYPE 2 DIABETES MELLITUS
     Route: 058

REACTIONS (17)
  - Movement disorder [Unknown]
  - Cold sweat [Unknown]
  - Device malfunction [Unknown]
  - Carpal tunnel syndrome [Unknown]
  - Incoherent [Unknown]
  - Injection site discomfort [Unknown]
  - Injection site bruising [Unknown]
  - Injection site pain [Unknown]
  - Injection site nodule [Not Recovered/Not Resolved]
  - Body height decreased [Not Recovered/Not Resolved]
  - Blood glucose decreased [Unknown]
  - Lymphoedema [Unknown]
  - Visual impairment [Unknown]
  - Malaise [Unknown]
  - Incorrect dose administered [Unknown]
  - Hyperhidrosis [Unknown]
  - Wrong technique in device usage process [Unknown]

NARRATIVE: CASE EVENT DATE: 20170907
